FAERS Safety Report 6237612-9 (Version None)
Quarter: 2009Q2

REPORT INFORMATION
  Report Type: 
  Country: None (occurrence: None)
  Receive Date: 20090619
  Receipt Date: 20090610
  Transmission Date: 20091009
  Serious: Yes (Hospitalization, Other)
  Sender: FDA-Public Use
  Company Number: FR-MERCK-0906FRA00058

PATIENT
  Age: 62 Year
  Sex: Female

DRUGS (4)
  1. FOSAMAX [Suspect]
     Indication: OSTEOPOROSIS
     Route: 048
     Dates: start: 20040101, end: 20081201
  2. ALENDRONATE SODIUM AND CHOLECALCIFEROL [Suspect]
     Indication: OSTEOPOROSIS
     Route: 048
     Dates: start: 20090101
  3. LEVOTHYROXINE SODIUM [Concomitant]
     Route: 048
  4. CALCIUM CARBONATE [Concomitant]
     Indication: OSTEOPOROSIS
     Route: 048

REACTIONS (4)
  - PROTEIN S DEFICIENCY [None]
  - PULMONARY EMBOLISM [None]
  - SPINAL FRACTURE [None]
  - TOOTHACHE [None]
